FAERS Safety Report 16942647 (Version 1)
Quarter: 2019Q4

REPORT INFORMATION
  Report Type: Spontaneous
  Country: FR (occurrence: FR)
  Receive Date: 20191021
  Receipt Date: 20191021
  Transmission Date: 20200122
  Serious: Yes (Other)
  Sender: FDA-Public Use
  Company Number: FR-009507513-1905FRA009024

PATIENT
  Sex: Female

DRUGS (2)
  1. NASONEX [Suspect]
     Active Substance: MOMETASONE FUROATE
     Indication: SEASONAL ALLERGY
  2. NASONEX [Suspect]
     Active Substance: MOMETASONE FUROATE
     Indication: ALLERGIC RESPIRATORY SYMPTOM
     Dosage: UNK
     Dates: end: 20190517

REACTIONS (4)
  - Vision blurred [Unknown]
  - Epistaxis [Unknown]
  - Cataract [Unknown]
  - Eye operation [Unknown]

NARRATIVE: CASE EVENT DATE: 2019
